FAERS Safety Report 13494859 (Version 1)
Quarter: 2017Q2

REPORT INFORMATION
  Report Type: Spontaneous
  Country: US (occurrence: US)
  Receive Date: 20170428
  Receipt Date: 20170428
  Transmission Date: 20170830
  Serious: Yes (Death)
  Sender: FDA-Public Use
  Company Number: US-ROCHE-1926531

PATIENT
  Sex: Male
  Weight: 86.26 kg

DRUGS (2)
  1. AVASTIN [Suspect]
     Active Substance: BEVACIZUMAB
     Indication: COLON CANCER
     Dosage: INFUSE 468 MG EVERY 2 WEEKS
     Route: 042
     Dates: start: 20160824
  2. AVASTIN [Suspect]
     Active Substance: BEVACIZUMAB
     Dosage: INFUSE 468 MG EVERY 2 WEEKS
     Route: 042
     Dates: start: 20160824

REACTIONS (1)
  - Death [Fatal]
